FAERS Safety Report 10477259 (Version 2)
Quarter: 2014Q4

REPORT INFORMATION
  Report Type: Spontaneous
  Country: GB (occurrence: None)
  Receive Date: 20140923
  Receipt Date: 20141014
  Transmission Date: 20150528
  Serious: Yes (Other)
  Sender: FDA-Public Use
  Company Number: GB-016814

PATIENT
  Age: 10 Year
  Sex: Female

DRUGS (2)
  1. DESMOPRESSIN (DESMOTAB) 200 UG (NOT SPECIFIED) [Suspect]
     Active Substance: DESMOPRESSIN
     Indication: ENURESIS
     Route: 048
     Dates: start: 20121012, end: 20140609
  2. NASEPTIN [Concomitant]

REACTIONS (3)
  - Epistaxis [None]
  - Thirst [None]
  - Menorrhagia [None]
